FAERS Safety Report 4794438-0 (Version None)
Quarter: 2005Q4

REPORT INFORMATION
  Report Type: 
  Country: None (occurrence: None)
  Receive Date: 20051011
  Receipt Date: 20050929
  Transmission Date: 20060501
  Serious: Yes (Hospitalization)
  Sender: FDA-Public Use
  Company Number: FR-AMGEN-UK152564

PATIENT
  Sex: Female

DRUGS (8)
  1. MIMPARA [Suspect]
     Indication: HYPERPARATHYROIDISM SECONDARY
     Route: 048
  2. MOPRAL [Concomitant]
     Route: 048
  3. RENAGEL [Concomitant]
     Route: 048
  4. LEXOMIL [Concomitant]
     Route: 048
  5. PRAVASTATIN [Concomitant]
     Route: 048
  6. OESTRADIOL [Concomitant]
     Route: 061
  7. PROGESTERONE [Concomitant]
     Route: 061
  8. CELIPROLOL [Concomitant]
     Route: 048

REACTIONS (2)
  - RENAL COLIC [None]
  - TETANY [None]
